FAERS Safety Report 7290062-9 (Version None)
Quarter: 2011Q1

REPORT INFORMATION
  Report Type: 
  Country: None (occurrence: None)
  Receive Date: 20110214
  Receipt Date: 20110203
  Transmission Date: 20110831
  Serious: Yes (Hospitalization, Other)
  Sender: FDA-Public Use
  Company Number: US-ELI_LILLY_AND_COMPANY-US201102001219

PATIENT
  Sex: Male

DRUGS (4)
  1. LANTUS [Concomitant]
  2. NOVOLOG [Concomitant]
  3. ORAL ANTIDIABETICS [Concomitant]
  4. HUMALOG [Suspect]
     Indication: DIABETES MELLITUS
     Dosage: UNK, AS NEEDED

REACTIONS (5)
  - LEG AMPUTATION [None]
  - TOE AMPUTATION [None]
  - INFECTION [None]
  - LIMB INJURY [None]
  - MEDICATION ERROR [None]
